FAERS Safety Report 5004961-1 (Version None)
Quarter: 2006Q1

REPORT INFORMATION
  Report Type: 
  Country: None (occurrence: None)
  Receive Date: 20060321
  Receipt Date: 20060214
  Transmission Date: 20060701
  Serious: No
  Sender: FDA-Public Use
  Company Number: YPA20050549

PATIENT

DRUGS (1)
  1. VESICARE [Suspect]
     Dosage: 5 MG, UID/QD
     Dates: start: 20050101

REACTIONS (1)
  - HAIR GROWTH ABNORMAL [None]
